FAERS Safety Report 9626570 (Version 3)
Quarter: 2014Q3

REPORT INFORMATION
  Report Type: Spontaneous
  Country: US (occurrence: US)
  Receive Date: 20131016
  Receipt Date: 20140822
  Transmission Date: 20150326
  Serious: Yes (Hospitalization, Other)
  Sender: FDA-Public Use
  Company Number: US-009507513-2010SP009673

PATIENT
  Sex: Female
  Weight: 58.97 kg

DRUGS (2)
  1. FLEXERIL [Concomitant]
     Active Substance: CYCLOBENZAPRINE HYDROCHLORIDE
     Indication: MUSCLE STRAIN
     Dosage: UNK UNK, PRN
  2. NUVARING [Suspect]
     Active Substance: ETHINYL ESTRADIOL\ETONOGESTREL
     Indication: HAEMORRHAGE
     Dosage: 1 DF, UNKNOWN
     Route: 067
     Dates: start: 2002, end: 200408

REACTIONS (20)
  - Off label use [Unknown]
  - Drug intolerance [Unknown]
  - Hysterectomy [Unknown]
  - Thrombosis [Not Recovered/Not Resolved]
  - Iron deficiency [Unknown]
  - Post thrombotic syndrome [Unknown]
  - Deep vein thrombosis [Not Recovered/Not Resolved]
  - Pulmonary embolism [Not Recovered/Not Resolved]
  - Pulmonary embolism [Unknown]
  - Hypercoagulation [Unknown]
  - Upper respiratory tract infection [Unknown]
  - Vitamin B12 deficiency [Unknown]
  - Lymphadenopathy [Recovered/Resolved]
  - Breast pain [Unknown]
  - Weight increased [Unknown]
  - International normalised ratio fluctuation [Unknown]
  - Drug interaction [Unknown]
  - Treatment noncompliance [Unknown]
  - Sinusitis [Unknown]
  - Microcytic anaemia [Recovered/Resolved]

NARRATIVE: CASE EVENT DATE: 200202
